FAERS Safety Report 9412641 (Version 1)
Quarter: 2013Q3

REPORT INFORMATION
  Report Type: Spontaneous
  Country: JP (occurrence: JP)
  Receive Date: 20130722
  Receipt Date: 20130722
  Transmission Date: 20140515
  Serious: Yes (Other)
  Sender: FDA-Public Use
  Company Number: JP-PFIZER INC-2013213430

PATIENT
  Age: 3 Decade
  Sex: Female

DRUGS (1)
  1. JZOLOFT [Suspect]
     Dosage: UNK
     Route: 048
     Dates: start: 2012

REACTIONS (3)
  - Liver disorder [Unknown]
  - Alanine aminotransferase increased [Unknown]
  - Aspartate aminotransferase increased [Unknown]
